FAERS Safety Report 4331593-0 (Version None)
Quarter: 2004Q2

REPORT INFORMATION
  Report Type: 
  Country: None (occurrence: None)
  Receive Date: 20040402
  Receipt Date: 20040325
  Transmission Date: 20050107
  Serious: Yes (Hospitalization)
  Sender: FDA-Public Use
  Company Number: DE-MERCK-0403DEU00180

PATIENT
  Age: 76 Year
  Sex: Male
  Weight: 85 kg

DRUGS (6)
  1. ASPIRIN [Concomitant]
     Route: 065
     Dates: start: 20020101
  2. CANDESARTAN CILEXETIL [Concomitant]
     Route: 065
  3. ZETIA [Suspect]
     Route: 048
     Dates: start: 20040315, end: 20040325
  4. ISRADIPINE [Concomitant]
     Route: 065
     Dates: start: 20010101
  5. METFORMIN [Concomitant]
     Route: 065
     Dates: start: 20010101
  6. NATEGLINIDE [Concomitant]
     Route: 065
     Dates: start: 20020101

REACTIONS (2)
  - ANGINA PECTORIS [None]
  - MUSCLE CRAMP [None]
